FAERS Safety Report 6307254-5 (Version None)
Quarter: 2009Q3

REPORT INFORMATION
  Report Type: 
  Country: None (occurrence: None)
  Receive Date: 20090813
  Receipt Date: 20090731
  Transmission Date: 20100115
  Serious: Yes (Other)
  Sender: FDA-Public Use
  Company Number: GB-RANBAXY-2009RR-26007

PATIENT
  Sex: Female

DRUGS (6)
  1. TOPIRAMATE [Suspect]
     Dosage: 100 MG, BID
     Dates: start: 20060101
  2. RANCEPINE [Suspect]
     Dosage: 400 MG, BID
     Dates: start: 20060101
  3. TEGRETOL [Suspect]
     Dosage: 200 MG, QD
     Route: 048
  4. ATENOLOL [Concomitant]
     Dosage: 35 MG, QD
  5. LAMOTRIGINE [Concomitant]
     Dosage: UNK
     Dates: start: 20060101
  6. LISINOPRIL [Concomitant]
     Dosage: 5 MG, QD

REACTIONS (7)
  - DYSPNOEA [None]
  - EYE PAIN [None]
  - MOOD SWINGS [None]
  - NAUSEA [None]
  - RASH [None]
  - SPEECH DISORDER [None]
  - SWELLING FACE [None]
